FAERS Safety Report 20702157 (Version 2)
Quarter: 2022Q2

REPORT INFORMATION
  Report Type: Spontaneous
  Country: DE (occurrence: DE)
  Receive Date: 20220412
  Receipt Date: 20220504
  Transmission Date: 20220720
  Serious: Yes (Hospitalization, Other)
  Sender: FDA-Public Use
  Company Number: DE-TEVA-2022-DE-2025880

PATIENT
  Age: 41 Year
  Sex: Male

DRUGS (3)
  1. CARBOPLATIN [Suspect]
     Active Substance: CARBOPLATIN
     Indication: Malignant neoplasm of unknown primary site
     Route: 065
  2. PACLITAXEL [Suspect]
     Active Substance: PACLITAXEL
     Indication: Malignant neoplasm of unknown primary site
     Route: 065
  3. ENTRECTINIB [Suspect]
     Active Substance: ENTRECTINIB
     Indication: Malignant neoplasm of unknown primary site
     Route: 065
     Dates: start: 201804

REACTIONS (2)
  - Drug resistance [Unknown]
  - Drug ineffective [Unknown]
